FAERS Safety Report 14733591 (Version 23)
Quarter: 2022Q2

REPORT INFORMATION
  Report Type: Report from Study
  Country: BR (occurrence: None)
  Receive Date: 20180409
  Receipt Date: 20220625
  Transmission Date: 20220721
  Serious: Yes (Hospitalization)
  Sender: FDA-Public Use
  Company Number: BR-ROCHE-2099030

PATIENT
  Age: 59 Year
  Sex: Female
  Weight: 63.5 kg

DRUGS (83)
  1. ATEZOLIZUMAB [Suspect]
     Active Substance: ATEZOLIZUMAB
     Indication: Ovarian cancer
     Dosage: DATE OF MOST RECENT DOSE OF ATEZOLIZUMAB/PLACEBO PRIOR TO AE ONSET 20 MAR 2018?ON 12/APR/2018, SHE R
     Route: 042
     Dates: start: 20180320
  2. BEVACIZUMAB [Suspect]
     Active Substance: BEVACIZUMAB
     Indication: Ovarian cancer
     Dosage: DATE OF MOST RECENT DOSE (1050 MG )OF BEVACIZUMAB PRIOR TO AE ONSET 20 MAR 2018 ?ON 12/APR/2018, SHE
     Route: 042
     Dates: start: 20180320
  3. PACLITAXEL [Suspect]
     Active Substance: PACLITAXEL
     Indication: Ovarian cancer
     Dosage: DATE OF MOST RECENT DOSE (313 MG) OF PACLITAXEL PRIOR TO AE ONSET 20 MAR 2018, ON 12/APR/2018, SHE R
     Route: 042
     Dates: start: 20180320
  4. CARBOPLATIN [Suspect]
     Active Substance: CARBOPLATIN
     Indication: Ovarian cancer
     Dosage: DATE OF MOST RECENT DOSE (652 MG)OF CARBOPLATIN PRIOR TO AE ONSET 20 MAR 2018 AND 12/APR/2018?ACHIEV
     Route: 042
     Dates: start: 20180320
  5. LEVOTHYROXINE SODIUM [Concomitant]
     Active Substance: LEVOTHYROXINE SODIUM
     Indication: Hypothyroidism
     Dates: start: 2016
  6. FLUOXETINE HYDROCHLORIDE [Concomitant]
     Active Substance: FLUOXETINE HYDROCHLORIDE
     Indication: Anxiety
     Dates: start: 2014, end: 20190428
  7. LACTON [Concomitant]
     Indication: Constipation
     Dates: start: 1968, end: 20180905
  8. ALDACTONE [Concomitant]
     Active Substance: SPIRONOLACTONE
     Indication: Ascites
     Dates: start: 20180221, end: 20180330
  9. ZOLPIDEM [Concomitant]
     Active Substance: ZOLPIDEM TARTRATE
     Indication: Insomnia
     Dates: start: 20180221, end: 20180409
  10. ACETAMINOPHEN\CODEINE PHOSPHATE [Concomitant]
     Active Substance: ACETAMINOPHEN\CODEINE PHOSPHATE
     Indication: Abdominal pain
     Dates: start: 20180221, end: 20180427
  11. DIPYRONE [Concomitant]
     Active Substance: DIPYRONE
     Indication: Abdominal pain
     Dates: start: 20180221, end: 20180403
  12. DIPYRONE [Concomitant]
     Active Substance: DIPYRONE
     Dates: start: 20180328
  13. DEXAMETHASONE [Concomitant]
     Active Substance: DEXAMETHASONE
     Indication: Hypersensitivity
     Route: 042
     Dates: start: 20180320, end: 20180320
  14. DEXAMETHASONE [Concomitant]
     Active Substance: DEXAMETHASONE
     Route: 048
     Dates: start: 20180410, end: 20180411
  15. DEXAMETHASONE [Concomitant]
     Active Substance: DEXAMETHASONE
     Route: 048
     Dates: start: 20180412, end: 20180412
  16. DEXAMETHASONE [Concomitant]
     Active Substance: DEXAMETHASONE
     Route: 048
     Dates: start: 20180424, end: 20180502
  17. DEXAMETHASONE [Concomitant]
     Active Substance: DEXAMETHASONE
     Route: 042
     Dates: start: 20180428, end: 20180428
  18. RANITIDINE [Concomitant]
     Active Substance: RANITIDINE
     Indication: Abdominal pain upper
     Dates: start: 20180320, end: 20180320
  19. RANITIDINE [Concomitant]
     Active Substance: RANITIDINE
     Dates: start: 20180412, end: 20180412
  20. RANITIDINE [Concomitant]
     Active Substance: RANITIDINE
     Dates: start: 20190314, end: 20190314
  21. RANITIDINE [Concomitant]
     Active Substance: RANITIDINE
     Dates: start: 20190403, end: 20190403
  22. RANITIDINE [Concomitant]
     Active Substance: RANITIDINE
     Dates: start: 20190425, end: 20190425
  23. RANITIDINE [Concomitant]
     Active Substance: RANITIDINE
     Dates: start: 20190717, end: 20190717
  24. RANITIDINE [Concomitant]
     Active Substance: RANITIDINE
     Dates: start: 20190807, end: 20190807
  25. DIPHENHYDRAMINE [Concomitant]
     Active Substance: DIPHENHYDRAMINE
     Indication: Hypersensitivity
     Dates: start: 20180320, end: 20180320
  26. DIPHENHYDRAMINE [Concomitant]
     Active Substance: DIPHENHYDRAMINE
     Dates: start: 20180412, end: 20180412
  27. DIPHENHYDRAMINE [Concomitant]
     Active Substance: DIPHENHYDRAMINE
     Dates: start: 20190314, end: 20190314
  28. DIPHENHYDRAMINE [Concomitant]
     Active Substance: DIPHENHYDRAMINE
     Dates: start: 20190403, end: 20190403
  29. DIPHENHYDRAMINE [Concomitant]
     Active Substance: DIPHENHYDRAMINE
     Dates: start: 20190425, end: 20190425
  30. DIPHENHYDRAMINE [Concomitant]
     Active Substance: DIPHENHYDRAMINE
     Dates: start: 20190717, end: 20190717
  31. DIPHENHYDRAMINE [Concomitant]
     Active Substance: DIPHENHYDRAMINE
     Dates: start: 20190807, end: 20190807
  32. ONDANSETRON [Concomitant]
     Active Substance: ONDANSETRON
     Indication: Nausea
     Dates: start: 20180320, end: 20180320
  33. ONDANSETRON [Concomitant]
     Active Substance: ONDANSETRON
     Indication: Vomiting
     Dates: start: 20180412, end: 20180412
  34. ONDANSETRON [Concomitant]
     Active Substance: ONDANSETRON
     Dates: start: 20180321, end: 20180321
  35. ONDANSETRON [Concomitant]
     Active Substance: ONDANSETRON
     Dates: start: 20190314, end: 20190314
  36. ONDANSETRON [Concomitant]
     Active Substance: ONDANSETRON
     Dates: start: 20181130
  37. ONDANSETRON [Concomitant]
     Active Substance: ONDANSETRON
     Dates: start: 20190403, end: 20190403
  38. ONDANSETRON [Concomitant]
     Active Substance: ONDANSETRON
     Dates: start: 20190425, end: 20190425
  39. ONDANSETRON [Concomitant]
     Active Substance: ONDANSETRON
     Dates: start: 20190717, end: 20190717
  40. ONDANSETRON [Concomitant]
     Active Substance: ONDANSETRON
     Dates: start: 20190807, end: 20190807
  41. NYSTATIN [Concomitant]
     Active Substance: NYSTATIN
     Indication: Stomatitis
     Dates: start: 20180323, end: 20180821
  42. SODIUM CHLORIDE [Concomitant]
     Active Substance: SODIUM CHLORIDE
     Indication: Hyponatraemia
     Dates: start: 20180331, end: 20180401
  43. TRAMADOL [Concomitant]
     Active Substance: TRAMADOL
     Indication: Abdominal pain
     Dates: start: 20180402, end: 20180403
  44. XYLOCAINE [Concomitant]
     Active Substance: LIDOCAINE HYDROCHLORIDE
     Indication: Stomatitis
     Dates: start: 20180402, end: 20180408
  45. DIMETHICONE [Concomitant]
     Active Substance: DIMETHICONE
     Indication: Constipation
     Dates: start: 20180404, end: 20180408
  46. LACTULONA [Concomitant]
     Indication: Constipation
     Dates: start: 20180404, end: 20180408
  47. LACTULONA [Concomitant]
     Dates: start: 20180430, end: 20180430
  48. LACTULONA [Concomitant]
     Dates: start: 20180502, end: 20180502
  49. CAPTOPRIL [Concomitant]
     Active Substance: CAPTOPRIL
     Indication: Hypertension
     Dates: start: 20180408, end: 20180408
  50. CAPTOPRIL [Concomitant]
     Active Substance: CAPTOPRIL
     Indication: Hypertension
     Dates: start: 20180412, end: 20180412
  51. CAPTOPRIL [Concomitant]
     Active Substance: CAPTOPRIL
     Dates: start: 20180427, end: 20180427
  52. CAPTOPRIL [Concomitant]
     Active Substance: CAPTOPRIL
     Dates: start: 20180501, end: 20180501
  53. CAPTOPRIL [Concomitant]
     Active Substance: CAPTOPRIL
     Dates: start: 20180614, end: 20180614
  54. CAPTOPRIL [Concomitant]
     Active Substance: CAPTOPRIL
     Dates: start: 20180616, end: 20180616
  55. PROMETHAZINE [Concomitant]
     Active Substance: PROMETHAZINE HYDROCHLORIDE
     Indication: Hypersensitivity
     Dates: start: 20180319, end: 20180331
  56. PROMETHAZINE [Concomitant]
     Active Substance: PROMETHAZINE HYDROCHLORIDE
     Indication: Urticaria
     Dates: start: 20180428, end: 20180428
  57. LOPERAMIDE [Concomitant]
     Active Substance: LOPERAMIDE
     Indication: Diarrhoea
     Dates: start: 20180321, end: 20180321
  58. SODIUM CHLORIDE [Concomitant]
     Active Substance: SODIUM CHLORIDE
     Indication: Hyponatraemia
     Dates: start: 20180331, end: 20180401
  59. OMEPRAZOLE [Concomitant]
     Active Substance: OMEPRAZOLE
     Indication: Abdominal pain upper
     Dates: start: 20180321, end: 20180904
  60. FERROUS SULFATE [Concomitant]
     Active Substance: FERROUS SULFATE
     Indication: Insomnia
     Dates: start: 20180410, end: 20180426
  61. FERROUS SULFATE [Concomitant]
     Active Substance: FERROUS SULFATE
     Dates: start: 20180427, end: 20180813
  62. LORAZEPAM [Concomitant]
     Active Substance: LORAZEPAM
     Indication: Insomnia
     Dates: start: 20180410, end: 20180716
  63. AMLODIPINE [Concomitant]
     Active Substance: AMLODIPINE BESYLATE
     Indication: Hypertension
     Dates: start: 20180426, end: 20180426
  64. AMLODIPINE [Concomitant]
     Active Substance: AMLODIPINE BESYLATE
     Dates: start: 20180501, end: 20180502
  65. FOLIC ACID [Concomitant]
     Active Substance: FOLIC ACID
     Indication: Anaemia
     Dates: start: 20180410, end: 20180426
  66. FOLIC ACID [Concomitant]
     Active Substance: FOLIC ACID
     Dates: start: 20180427, end: 20180813
  67. TRIAMCINOLONE [Concomitant]
     Active Substance: TRIAMCINOLONE
     Indication: Stomatitis
     Dosage: DOSE 1 OTHER
     Route: 061
     Dates: start: 20180331, end: 20180408
  68. ALOE VERA LEAF [Concomitant]
     Active Substance: ALOE VERA LEAF
     Indication: Stomatitis
     Dates: start: 20180331, end: 20180408
  69. ALOE VERA LEAF [Concomitant]
     Active Substance: ALOE VERA LEAF
     Dates: start: 20180501
  70. SODIUM CHLORIDE [Concomitant]
     Active Substance: SODIUM CHLORIDE
     Indication: Prophylaxis
     Dosage: SODIUM CHLORIDE 0.9% (NEBULIZATION)
     Dates: start: 20180403, end: 20180406
  71. SODIUM CHLORIDE [Concomitant]
     Active Substance: SODIUM CHLORIDE
     Indication: Hyponatraemia
     Dates: start: 20180331, end: 20180401
  72. ACETAMINOPHEN [Concomitant]
     Active Substance: ACETAMINOPHEN
     Indication: Prophylaxis
     Dates: start: 20180423, end: 20180424
  73. HUMAN RED BLOOD CELL [Concomitant]
     Active Substance: HUMAN RED BLOOD CELL
     Indication: Anaemia
     Dates: start: 20180426, end: 20180426
  74. BISACODILO [Concomitant]
     Indication: Constipation
     Dates: start: 20180426, end: 20180426
  75. LORATADINE [Concomitant]
     Active Substance: LORATADINE
     Indication: Papule
     Dates: start: 20180430, end: 20180502
  76. BUPRENORPHINE [Concomitant]
     Active Substance: BUPRENORPHINE
     Indication: Abdominal pain
     Dates: start: 20181117
  77. VITAMIN C [Concomitant]
     Active Substance: ASCORBIC ACID
     Dates: start: 20181225
  78. OMEGA 3 [Concomitant]
     Active Substance: CAPSAICIN
     Dates: start: 20181220
  79. ESOMEPRAZOLE [Concomitant]
     Active Substance: ESOMEPRAZOLE
     Indication: Gastritis
     Dates: start: 20190208
  80. IBUPROFEN [Concomitant]
     Active Substance: IBUPROFEN
     Indication: Arthralgia
     Dates: start: 20190205, end: 20190325
  81. PREGABALIN [Concomitant]
     Active Substance: PREGABALIN
     Indication: Polyarthritis
     Dates: start: 20190328, end: 20190330
  82. SERTRALINE [Concomitant]
     Active Substance: SERTRALINE HYDROCHLORIDE
     Indication: Anxiety
     Dates: start: 20190429
  83. DIACERHEIN [Concomitant]
     Indication: Polyarthritis
     Dates: start: 20190624, end: 20190728

REACTIONS (5)
  - Urticaria [Recovered/Resolved]
  - Febrile neutropenia [Recovered/Resolved]
  - Thrombocytopenia [Recovered/Resolved]
  - Hypertension [Recovered/Resolved]
  - Hypertension [Recovered/Resolved]

NARRATIVE: CASE EVENT DATE: 20180329
